FAERS Safety Report 8607796-3 (Version None)
Quarter: 2012Q3

REPORT INFORMATION
  Report Type: 
  Country: None (occurrence: None)
  Receive Date: 20120821
  Receipt Date: 20120815
  Transmission Date: 20120928
  Serious: Yes (Hospitalization, Other)
  Sender: FDA-Public Use
  Company Number: PHHY2012CA034017

PATIENT
  Sex: Female

DRUGS (5)
  1. EXJADE [Suspect]
     Indication: APLASTIC ANAEMIA
     Dosage: 2 DF, A DAY
     Route: 048
  2. BLOOD CELLS, PACKED HUMAN [Concomitant]
  3. RANITIDINE [Concomitant]
     Route: 048
  4. EXJADE [Suspect]
     Dosage: 1000 MG
     Route: 048
     Dates: start: 20110101
  5. PLATELETS [Concomitant]
     Dosage: UNK UKN, UNK
     Route: 065

REACTIONS (8)
  - DEHYDRATION [None]
  - GLAUCOMA [None]
  - NASOPHARYNGITIS [None]
  - FATIGUE [None]
  - LIVER FUNCTION TEST ABNORMAL [None]
  - CLOSTRIDIUM DIFFICILE COLITIS [None]
  - SERUM FERRITIN INCREASED [None]
  - BLOOD CREATININE INCREASED [None]
